FAERS Safety Report 8948084 (Version 3)
Quarter: 2013Q1

REPORT INFORMATION
  Report Type: Spontaneous
  Country: JP (occurrence: None)
  Receive Date: 20121127
  Receipt Date: 20121231
  Transmission Date: 20140127
  Serious: Yes (Hospitalization)
  Sender: FDA-Public Use
  Company Number: TCI2012A06690

PATIENT
  Age: 49 Year
  Sex: Female

DRUGS (5)
  1. TAKEPRON [Suspect]
     Indication: PRODUCT USED FOR UNKNOWN INDICATION
     Route: 048
  2. OMEPRAZOLE [Suspect]
     Indication: PRODUCT USED FOR UNKNOWN INDICATION
     Route: 065
  3. CIMETIDINE [Concomitant]
  4. GLYCYRRHIZIC ACID [Concomitant]
  5. URSODEOXYCHOLIC ACID [Concomitant]

REACTIONS (19)
  - Renal tubular acidosis [None]
  - Muscular weakness [None]
  - Polyuria [None]
  - Polydipsia [None]
  - Hypokalaemia [None]
  - Condition aggravated [None]
  - Hyperventilation [None]
  - Fatigue [None]
  - Oedema [None]
  - Oedema peripheral [None]
  - Electrocardiogram T wave amplitude decreased [None]
  - Electrocardiogram U-wave abnormality [None]
  - Metabolic acidosis [None]
  - Rhabdomyolysis [None]
  - Autoimmune hepatitis [None]
  - Secondary aldosteronism [None]
  - Renal tubular disorder [None]
  - Dehydration [None]
  - Hepatic fibrosis [None]
